FAERS Safety Report 12783296 (Version 1)
Quarter: 2016Q3

REPORT INFORMATION
  Report Type: Spontaneous
  Country: US (occurrence: US)
  Receive Date: 20160927
  Receipt Date: 20160927
  Transmission Date: 20161109
  Serious: No
  Sender: FDA-Public Use
  Company Number: US-SUN PHARMACEUTICAL INDUSTRIES LTD-2015US-106985

PATIENT
  Sex: Female

DRUGS (1)
  1. HYDROCODONE AND ACETAMINOPHEN [Suspect]
     Active Substance: ACETAMINOPHEN\HYDROCODONE
     Indication: PAIN
     Dosage: 2 DF, BID
     Route: 065
     Dates: start: 201510

REACTIONS (3)
  - Blood pressure increased [Unknown]
  - Rash [Unknown]
  - Product substitution issue [Unknown]

NARRATIVE: CASE EVENT DATE: 201510
